FAERS Safety Report 10217330 (Version 1)
Quarter: 2014Q1

REPORT INFORMATION
  Report Type: Spontaneous
  Country: US (occurrence: None)
  Receive Date: 20140306
  Receipt Date: 20140306
  Transmission Date: 20141002
  Serious: Yes (Other)
  Sender: FDA-Public Use
  Company Number: 163-21880-13044670

PATIENT
  Age: 76 Year
  Sex: Male

DRUGS (9)
  1. REVLIMID [Suspect]
     Indication: PLASMA CELL MYELOMA
     Dosage: 15 MG , 21 IN 21 D, PO  03/07/2013 - TEMP INTERRUPTED  THERAPY DATES
     Route: 048
     Dates: start: 20130307
  2. ACTOS (PIOGLITAZONE) [Concomitant]
  3. ALLOPURINOL (ALLOPURINOL) [Concomitant]
  4. ASA (ACETYLSALICYLIC ACID) [Concomitant]
  5. ATENOLOL (ATENOLOL) [Concomitant]
  6. FAMOTIDINE (FAMOTIDINE) [Concomitant]
  7. GLIMEPIRIDE (GLIMEPIRIDE) [Concomitant]
  8. GLIPIZIDE (GLIPIZIDE) [Concomitant]
  9. JANUVIA (SITAGLIPTIN PHOSPHATE) [Concomitant]

REACTIONS (1)
  - Dysuria [None]
